FAERS Safety Report 18611048 (Version 2)
Quarter: 2021Q1

REPORT INFORMATION
  Report Type: Spontaneous
  Country: US (occurrence: US)
  Receive Date: 20201214
  Receipt Date: 20210330
  Transmission Date: 20210419
  Serious: No
  Sender: FDA-Public Use
  Company Number: US-DRREDDYS-USA/USA/20/0129716

PATIENT
  Age: 31 Year
  Sex: Female

DRUGS (2)
  1. GONADOTROPIN [Concomitant]
     Active Substance: CHORIOGONADOTROPIN ALFA
     Indication: CONTROLLED OVARIAN STIMULATION
  2. LETROZOLE TABLETS, USP 2.5 MG [Suspect]
     Active Substance: LETROZOLE
     Indication: OVARIAN CANCER STAGE I
     Route: 048

REACTIONS (1)
  - Hot flush [Unknown]
